FAERS Safety Report 6932926-9 (Version None)
Quarter: 2010Q3

REPORT INFORMATION
  Report Type: 
  Country: None (occurrence: None)
  Receive Date: 20100819
  Receipt Date: 20091007
  Transmission Date: 20110219
  Serious: No
  Sender: FDA-Public Use
  Company Number: US-TYCO HEALTHCARE/MALLINCKRODT-T200901873

PATIENT
  Age: 22 Year
  Sex: Female

DRUGS (1)
  1. CONRAY [Suspect]
     Dosage: 12 ML, SINGLE
     Route: 058

REACTIONS (1)
  - DRUG ADMINISTRATION ERROR [None]
